FAERS Safety Report 13906046 (Version 1)
Quarter: 2017Q3

REPORT INFORMATION
  Report Type: Spontaneous
  Country: US (occurrence: US)
  Receive Date: 20170825
  Receipt Date: 20170825
  Transmission Date: 20171127
  Serious: Yes (Other)
  Sender: FDA-Public Use
  Company Number: US-BRISTOL-MYERS SQUIBB COMPANY-BMS-2017-074494

PATIENT
  Sex: Female

DRUGS (1)
  1. SPRYCEL [Suspect]
     Active Substance: DASATINIB
     Indication: PRODUCT USED FOR UNKNOWN INDICATION
     Dosage: 100 MG, QD
     Route: 048
     Dates: start: 20170804

REACTIONS (10)
  - Headache [Unknown]
  - Rash [Unknown]
  - Fluid retention [Unknown]
  - Abdominal distension [Unknown]
  - Sinusitis [Unknown]
  - Rhinorrhoea [Unknown]
  - Weight increased [Unknown]
  - Epistaxis [Unknown]
  - Abdominal pain [Unknown]
  - Muscle rigidity [Unknown]
